FAERS Safety Report 4664090-3 (Version None)
Quarter: 2005Q2

REPORT INFORMATION
  Report Type: 
  Country: None (occurrence: None)
  Receive Date: 20050516
  Receipt Date: 20050502
  Transmission Date: 20051028
  Serious: Yes (Other)
  Sender: FDA-Public Use
  Company Number: HQWYE504304MAY05

PATIENT
  Age: 70 Year
  Sex: Male
  Weight: 70.37 kg

DRUGS (4)
  1. PROTONIX [Suspect]
     Indication: GASTROOESOPHAGEAL REFLUX DISEASE
     Dosage: 40 MG 1X PER 1 DAY, ORAL
     Route: 048
     Dates: start: 20020101
  2. ACE INHIBITOR NOS (ACE INHIBITOR NOS) [Concomitant]
  3. CRESTOR [Concomitant]
  4. ASPIRIN [Concomitant]

REACTIONS (6)
  - CEREBROVASCULAR ACCIDENT [None]
  - DIZZINESS [None]
  - DROP ATTACKS [None]
  - DYSPEPSIA [None]
  - LABYRINTHITIS [None]
  - MUSCLE SPASMS [None]
